FAERS Safety Report 9631967 (Version 1)
Quarter: 2013Q4

REPORT INFORMATION
  Report Type: Spontaneous
  Country: GB (occurrence: None)
  Receive Date: 20131015
  Receipt Date: 20131015
  Transmission Date: 20140711
  Serious: No
  Sender: FDA-Public Use
  Company Number: GB2013K3775SPO

PATIENT
  Age: 68 Year
  Sex: Male

DRUGS (1)
  1. LANSOPRAZOLE [Suspect]
     Indication: COUGH
     Route: 048
     Dates: start: 201206, end: 201306

REACTIONS (2)
  - Activities of daily living impaired [None]
  - Somnolence [None]
